FAERS Safety Report 18689164 (Version 1)
Quarter: 2020Q4

REPORT INFORMATION
  Report Type: Report from Study
  Country: BR (occurrence: BR)
  Receive Date: 20201231
  Receipt Date: 20201231
  Transmission Date: 20210114
  Serious: Yes (Other)
  Sender: FDA-Public Use
  Company Number: BR-TOPROL-2020000416

PATIENT
  Sex: Female

DRUGS (1)
  1. METOPROLOL SUCCINATE. [Suspect]
     Active Substance: METOPROLOL SUCCINATE
     Dates: start: 202009, end: 2020

REACTIONS (6)
  - Chest pain [Unknown]
  - Hypertension [Unknown]
  - Asthenia [Unknown]
  - Malaise [Unknown]
  - Chest discomfort [Unknown]
  - Swelling [Unknown]

NARRATIVE: CASE EVENT DATE: 2020
